FAERS Safety Report 7572553-6 (Version None)
Quarter: 2011Q2

REPORT INFORMATION
  Report Type: 
  Country: None (occurrence: None)
  Receive Date: 20110627
  Receipt Date: 20090903
  Transmission Date: 20111010
  Serious: Yes (Hospitalization)
  Sender: FDA-Public Use
  Company Number: US-BIOGENIDEC-2008BI022928

PATIENT
  Age: 49 Year
  Sex: Male

DRUGS (8)
  1. TRAMADOL HCL [Concomitant]
  2. RISPERIDONE [Concomitant]
  3. SIMVASTATIN [Concomitant]
  4. ZANAFLEX [Concomitant]
  5. BACLOFEN [Concomitant]
     Dates: start: 20050101
  6. TYSABRI [Suspect]
     Indication: MULTIPLE SCLEROSIS
     Route: 042
     Dates: start: 20070723, end: 20090518
  7. PAROXETINE HCL [Concomitant]
  8. MELOXICAM [Concomitant]

REACTIONS (4)
  - URINARY TRACT INFECTION [None]
  - PYREXIA [None]
  - FATIGUE [None]
  - ASTHENIA [None]
